FAERS Safety Report 7775103-4 (Version None)
Quarter: 2011Q3

REPORT INFORMATION
  Report Type: 
  Country: None (occurrence: None)
  Receive Date: 20110923
  Receipt Date: 20110920
  Transmission Date: 20111222
  Serious: Yes (Life-Threatening)
  Sender: FDA-Public Use
  Company Number: JP-ROCHE-674450

PATIENT
  Sex: Male
  Weight: 70 kg

DRUGS (32)
  1. ACTEMRA [Suspect]
     Route: 041
     Dates: start: 20080922, end: 20080922
  2. ACTEMRA [Suspect]
     Route: 041
     Dates: start: 20090313, end: 20090313
  3. ACTEMRA [Suspect]
     Route: 041
     Dates: start: 20080825, end: 20080825
  4. ACTEMRA [Suspect]
     Route: 041
     Dates: start: 20081020, end: 20081020
  5. ACTEMRA [Suspect]
     Route: 041
     Dates: start: 20090408, end: 20090408
  6. ACTEMRA [Suspect]
     Route: 041
     Dates: start: 20090603, end: 20090603
  7. ADALAT [Concomitant]
     Route: 048
     Dates: start: 20091118, end: 20091130
  8. ACTEMRA [Suspect]
     Route: 041
     Dates: start: 20090507, end: 20090507
  9. ADALAT [Concomitant]
     Dosage: DOSE FORM: SUSTAINED RELEASE TABLET
     Route: 048
  10. OLMESARTAN MEDOXOMIL [Concomitant]
     Route: 048
     Dates: start: 20090924, end: 20091130
  11. ACONITE ROOT [Concomitant]
     Route: 048
     Dates: start: 20090729, end: 20091130
  12. PREDNISOLONE [Concomitant]
     Route: 048
     Dates: start: 20081121, end: 20090115
  13. FOSAMAX [Concomitant]
     Route: 048
     Dates: start: 20050311, end: 20091130
  14. ACTEMRA [Suspect]
     Route: 041
     Dates: start: 20090213, end: 20090213
  15. PREDNISOLONE [Concomitant]
     Route: 048
     Dates: start: 20081020, end: 20081120
  16. MICARDIS [Concomitant]
     Route: 048
  17. ACTEMRA [Suspect]
     Route: 041
     Dates: start: 20090116, end: 20090116
  18. PREDNISOLONE [Concomitant]
     Route: 048
     Dates: start: 20090116
  19. RABEPRAZOLE SODIUM [Concomitant]
     Route: 048
  20. ACTEMRA [Suspect]
     Route: 041
     Dates: start: 20090826, end: 20090826
  21. ACTEMRA [Suspect]
     Route: 041
     Dates: start: 20091021, end: 20091021
  22. ACTEMRA [Suspect]
     Route: 041
     Dates: start: 20091118, end: 20091118
  23. ACTEMRA [Suspect]
     Indication: RHEUMATOID ARTHRITIS
     Route: 041
     Dates: start: 20080728, end: 20080728
  24. ACTEMRA [Suspect]
     Route: 041
     Dates: start: 20081121, end: 20081121
  25. ACTEMRA [Suspect]
     Route: 041
     Dates: start: 20081219, end: 20081219
  26. ACTEMRA [Suspect]
     Route: 041
     Dates: start: 20090701, end: 20090701
  27. ACTEMRA [Suspect]
     Route: 041
     Dates: start: 20090729, end: 20090729
  28. ACTEMRA [Suspect]
     Route: 041
     Dates: start: 20090924, end: 20090924
  29. PREDNISOLONE [Concomitant]
     Route: 048
     Dates: end: 20081019
  30. LOXONIN [Concomitant]
     Dosage: DOSE FORM: ORAL FORMULATION (NOT OTHERWISE SPECIFIED)
     Route: 048
  31. KETOPROFEN [Concomitant]
     Dosage: DOSE FORM: TAPE
     Route: 061
     Dates: start: 20080728, end: 20091130
  32. BETAMETHASONE [Concomitant]
     Route: 048
     Dates: start: 20090729, end: 20091130

REACTIONS (3)
  - BACK PAIN [None]
  - BLOOD PRESSURE INCREASED [None]
  - LYMPHOMA [None]
